FAERS Safety Report 5930311-X (Version None)
Quarter: 2008Q4

REPORT INFORMATION
  Report Type: 
  Country: None (occurrence: None)
  Receive Date: 20081024
  Receipt Date: 20081016
  Transmission Date: 20090506
  Serious: Yes (Death, Hospitalization)
  Sender: FDA-Public Use
  Company Number: US-MERCK-0810USA03896

PATIENT
  Age: 64 Year
  Sex: Female

DRUGS (5)
  1. VYTORIN [Suspect]
     Route: 048
  2. HYDROXYCHLOROQUINE SULFATE [Suspect]
     Route: 065
  3. PRINIVIL [Concomitant]
     Route: 048
  4. RALOXIFENE HYDROCHLORIDE [Concomitant]
     Route: 065
  5. DILTIAZEM HYDROCHLORIDE [Concomitant]
     Route: 065

REACTIONS (6)
  - DYSPHAGIA [None]
  - DYSPHONIA [None]
  - DYSPNOEA EXERTIONAL [None]
  - MYOPATHY [None]
  - MYOPATHY TOXIC [None]
  - RESPIRATORY FAILURE [None]
